FAERS Safety Report 9345183 (Version 2)
Quarter: 2013Q3

REPORT INFORMATION
  Report Type: Spontaneous
  Country: US (occurrence: US)
  Receive Date: 20130612
  Receipt Date: 20130723
  Transmission Date: 20140515
  Serious: Yes (Death)
  Sender: FDA-Public Use
  Company Number: US-PFIZER INC-2013173155

PATIENT
  Age: 49 Year
  Sex: Male
  Weight: 81.63 kg

DRUGS (3)
  1. DEPO-TESTOSTERONE [Suspect]
     Indication: BLOOD TESTOSTERONE DECREASED
     Dosage: 200 MG/ML, EVERY TWO WEEKS
     Route: 030
     Dates: start: 20130305
  2. DEPO-TESTOSTERONE [Suspect]
     Dosage: 200 MG/ML, EVERY TWO WEEKS
     Route: 030
     Dates: start: 201306
  3. DEPO-TESTOSTERONE [Suspect]
     Dosage: 400 MG/ML, EVERY TWO WEEKS
     Route: 030

REACTIONS (2)
  - Death [Fatal]
  - Drug ineffective [Not Recovered/Not Resolved]
